FAERS Safety Report 24057984 (Version 1)
Quarter: 2024Q3

REPORT INFORMATION
  Report Type: Report from Study
  Country: GB (occurrence: GB)
  Receive Date: 20240707
  Receipt Date: 20240707
  Transmission Date: 20241016
  Serious: Yes (Other)
  Sender: NOVARTIS
  Company Number: GB-002147023-NVSC2024GB136502

PATIENT
  Age: 44 Year
  Sex: Female

DRUGS (1)
  1. MAYZENT [Suspect]
     Active Substance: SIPONIMOD
     Indication: Multiple sclerosis
     Dosage: 2 MG, QD
     Route: 048
     Dates: start: 20210629

REACTIONS (3)
  - Cerebrovascular accident [Unknown]
  - Vision blurred [Unknown]
  - Hypertension [Unknown]

NARRATIVE: CASE EVENT DATE: 20231001
